FAERS Safety Report 26061292 (Version 2)
Quarter: 2025Q4

REPORT INFORMATION
  Report Type: Report from Study
  Country: EU (occurrence: EU)
  Receive Date: 20251118
  Receipt Date: 20251202
  Transmission Date: 20260117
  Serious: Yes (Death, Other)
  Sender: VERITY PHARMACEUTICALS INC.
  Company Number: EU-VER-202500102

PATIENT
  Age: 80 Year
  Sex: Male

DRUGS (2)
  1. TRIPTORELIN PAMOATE [Suspect]
     Active Substance: TRIPTORELIN PAMOATE
     Indication: Prostate cancer
     Dosage: POWDER FOR PROLONGED-RELEASE SUSPENSION FOR INJECT
     Route: 030
     Dates: start: 20250715
  2. TRIPTORELIN PAMOATE [Suspect]
     Active Substance: TRIPTORELIN PAMOATE
     Indication: Prostate cancer
     Dosage: POWDER FOR PROLONGED-RELEASE SUSPENSION FOR INJECT
     Route: 030
     Dates: start: 20250414, end: 20251013

REACTIONS (4)
  - Chest injury [Unknown]
  - Death [Fatal]
  - Fall [Unknown]
  - Pneumonia [Unknown]

NARRATIVE: CASE EVENT DATE: 20250101
